FAERS Safety Report 6827019-5 (Version None)
Quarter: 2010Q3

REPORT INFORMATION
  Report Type: 
  Country: None (occurrence: None)
  Receive Date: 20100709
  Receipt Date: 20100708
  Transmission Date: 20110219
  Serious: Yes (Hospitalization)
  Sender: FDA-Public Use
  Company Number: US-ROXANE LABORATORIES, INC.-2010-RO-00806RO

PATIENT
  Age: 8 Year
  Sex: Male

DRUGS (2)
  1. PREDNISONE [Suspect]
     Indication: T-CELL TYPE ACUTE LEUKAEMIA
  2. METHOTREXATE TABLETS USP, 2.5 MG [Suspect]
     Indication: T-CELL TYPE ACUTE LEUKAEMIA
     Route: 037

REACTIONS (3)
  - IRRITABILITY [None]
  - MOOD SWINGS [None]
  - SUICIDAL IDEATION [None]
